FAERS Safety Report 19197830 (Version 4)
Quarter: 2024Q4

REPORT INFORMATION
  Report Type: Spontaneous
  Country: US (occurrence: US)
  Receive Date: 20210429
  Receipt Date: 20241113
  Transmission Date: 20250114
  Serious: Yes (Other)
  Sender: BIOMARIN
  Company Number: US-BIOMARINAP-US-2021-136219

PATIENT

DRUGS (3)
  1. LARONIDASE [Suspect]
     Active Substance: LARONIDASE
     Indication: Mucopolysaccharidosis I
     Dosage: 60.9 MG, QW
     Route: 042
     Dates: start: 20050214
  2. LARONIDASE [Suspect]
     Active Substance: LARONIDASE
     Dosage: 60.9 MG, QW
     Route: 042
     Dates: start: 20090901
  3. LARONIDASE [Suspect]
     Active Substance: LARONIDASE
     Dosage: 60.9 MG, QW
     Route: 042
     Dates: start: 20180405

REACTIONS (11)
  - Mitral valve stenosis [Recovering/Resolving]
  - Oedema peripheral [Recovering/Resolving]
  - Dyspnoea [Recovering/Resolving]
  - Fatigue [Recovering/Resolving]
  - Somnolence [Recovering/Resolving]
  - Asthenopia [Recovering/Resolving]
  - Mitral valve incompetence [Recovering/Resolving]
  - Catheter site swelling [Recovered/Resolved]
  - Catheter site erythema [Recovered/Resolved]
  - COVID-19 [Unknown]
  - Device issue [Unknown]

NARRATIVE: CASE EVENT DATE: 20210421
